FAERS Safety Report 18486960 (Version 1)
Quarter: 2020Q4

REPORT INFORMATION
  Report Type: Spontaneous
  Country: US (occurrence: US)
  Receive Date: 20201110
  Receipt Date: 20201110
  Transmission Date: 20210114
  Serious: Yes (Life-Threatening, Hospitalization, Other)
  Sender: FDA-Public Use
  Company Number: US-PURDUE-USA-2020-0166114

PATIENT
  Sex: Male

DRUGS (7)
  1. OXYCODONE HCL TABLETS (RHODES 91-490) [Suspect]
     Active Substance: OXYCODONE HYDROCHLORIDE
     Indication: PRODUCT USED FOR UNKNOWN INDICATION
     Dosage: UNKNOWN
     Route: 048
  2. METHADONE [Concomitant]
     Active Substance: METHADONE HYDROCHLORIDE
     Indication: PAIN
     Dosage: UNKNOWN
     Route: 065
  3. DILAUDID [Suspect]
     Active Substance: HYDROMORPHONE HYDROCHLORIDE
     Indication: PRODUCT USED FOR UNKNOWN INDICATION
     Dosage: UNKNOWN
     Route: 048
  4. HYDROCODONE BITARTRATE AND ACETAMINOPHEN [Suspect]
     Active Substance: ACETAMINOPHEN\HYDROCODONE BITARTRATE
     Indication: PRODUCT USED FOR UNKNOWN INDICATION
     Dosage: UNKNOWN
     Route: 048
  5. OXYCODONE HCL CR TABLETS (SIMILAR TO NDA 22-272) [Suspect]
     Active Substance: OXYCODONE HYDROCHLORIDE
     Indication: PRODUCT USED FOR UNKNOWN INDICATION
     Dosage: UNKNOWN
     Route: 048
  6. OXYCONTIN [Suspect]
     Active Substance: OXYCODONE HYDROCHLORIDE
     Indication: PAIN
     Dosage: 240 MG, DAILY
     Route: 048
     Dates: end: 2018
  7. OXYCODONE/ ACETAMINOPHEN TABLETS [Suspect]
     Active Substance: ACETAMINOPHEN\OXYCODONE HYDROCHLORIDE
     Indication: PRODUCT USED FOR UNKNOWN INDICATION
     Dosage: UNKNOWN
     Route: 048

REACTIONS (9)
  - Cardiac arrest [Unknown]
  - Substance abuse [Unknown]
  - Colon cancer [Unknown]
  - Drug dependence [Unknown]
  - Surgery [Unknown]
  - Neuropathy peripheral [Unknown]
  - Umbilical hernia [Unknown]
  - Overdose [Unknown]
  - Hip arthroplasty [Unknown]

NARRATIVE: CASE EVENT DATE: 2017
